FAERS Safety Report 17148149 (Version 1)
Quarter: 2019Q4

REPORT INFORMATION
  Report Type: Spontaneous
  Country: US (occurrence: US)
  Receive Date: 20191212
  Receipt Date: 20191212
  Transmission Date: 20200122
  Serious: Yes (Hospitalization)
  Sender: FDA-Public Use
  Company Number: US-ASTRAZENECA-2019SF79066

PATIENT
  Sex: Male
  Weight: 5.7 kg

DRUGS (6)
  1. SIMETHICONE (DIMETHICONE) [Concomitant]
     Active Substance: DIMETHICONE
  2. TYLENOL [Concomitant]
     Active Substance: ACETAMINOPHEN
  3. SULFATRIM PEDIATRIC [Concomitant]
  4. SYNAGIS [Suspect]
     Active Substance: PALIVIZUMAB
     Indication: ANTIVIRAL PROPHYLAXIS
     Route: 030
     Dates: start: 201911
  5. CREON [Concomitant]
     Active Substance: PANCRELIPASE AMYLASE\PANCRELIPASE LIPASE\PANCRELIPASE PROTEASE
  6. ALBUTEROL SULFATE. [Concomitant]
     Active Substance: ALBUTEROL SULFATE

REACTIONS (3)
  - Dyspnoea [Unknown]
  - Nasopharyngitis [Unknown]
  - Bacterial infection [Unknown]
